FAERS Safety Report 23585416 (Version 1)
Quarter: 2024Q1

REPORT INFORMATION
  Report Type: Spontaneous
  Country: US (occurrence: None)
  Receive Date: 20240229
  Receipt Date: 20240229
  Transmission Date: 20240410
  Serious: No
  Sender: FDA-Public Use
  Company Number: None

PATIENT
  Age: 35 Year
  Sex: Male
  Weight: 86.36 kg

DRUGS (1)
  1. CABENUVA [Suspect]
     Active Substance: CABOTEGRAVIR\RILPIVIRINE
     Indication: HIV infection
     Dosage: OTHER QUANTITY : 400-600 MG;?FREQUENCY : MONTHLY;?
     Route: 030
     Dates: start: 20201211, end: 20240229

REACTIONS (2)
  - Therapy cessation [None]
  - Gastrointestinal disorder [None]

NARRATIVE: CASE EVENT DATE: 20240229
